FAERS Safety Report 6245936-4 (Version None)
Quarter: 2009Q2

REPORT INFORMATION
  Report Type: 
  Country: None (occurrence: None)
  Receive Date: 20090626
  Receipt Date: 20080725
  Transmission Date: 20091009
  Serious: No
  Sender: FDA-Public Use
  Company Number: A0739764A

PATIENT
  Age: 15 Year
  Sex: Male

DRUGS (4)
  1. IMITREX [Suspect]
     Indication: MIGRAINE
     Dosage: 6MG VARIABLE DOSE
     Route: 058
     Dates: start: 20060101
  2. SUPPOSITORY [Concomitant]
     Indication: NAUSEA
  3. MAGNESIUM SULFATE [Concomitant]
  4. VITAMINS [Concomitant]

REACTIONS (3)
  - ADVERSE DRUG REACTION [None]
  - DRUG INEFFECTIVE [None]
  - RASH [None]
